APPROVED DRUG PRODUCT: PARACORT
Active Ingredient: PREDNISONE
Strength: 5MG
Dosage Form/Route: TABLET;ORAL
Application: N010962 | Product #002
Applicant: PARKE DAVIS DIV WARNER LAMBERT CO
Approved: Approved Prior to Jan 1, 1982 | RLD: No | RS: No | Type: DISCN